FAERS Safety Report 20163716 (Version 2)
Quarter: 2021Q4

REPORT INFORMATION
  Report Type: Spontaneous
  Country: US (occurrence: US)
  Receive Date: 20211209
  Receipt Date: 20211222
  Transmission Date: 20220303
  Serious: No
  Sender: FDA-Public Use
  Company Number: US-APOTEX-2021AP045534

PATIENT
  Sex: Female

DRUGS (2)
  1. NICOTINE [Suspect]
     Active Substance: NICOTINE
     Indication: Smoking cessation therapy
     Dosage: UNK, QD (7MG/DAY, 2 PATCHES A DAY)
     Route: 065
  2. NICOTINE [Suspect]
     Active Substance: NICOTINE
     Dosage: UNK, QD (7MG/DAY, 2 PATCHES A DAY)
     Route: 065

REACTIONS (3)
  - Product adhesion issue [Unknown]
  - No adverse event [Unknown]
  - Drug ineffective [Unknown]
